FAERS Safety Report 13410165 (Version 10)
Quarter: 2018Q3

REPORT INFORMATION
  Report Type: Spontaneous
  Country: US (occurrence: US)
  Receive Date: 20170406
  Receipt Date: 20180727
  Transmission Date: 20181010
  Serious: Yes (Life-Threatening, Congenital Anomaly, Other)
  Sender: FDA-Public Use
  Company Number: PHHY2015US131998

PATIENT
  Sex: Female

DRUGS (2)
  1. ZOFRAN [Suspect]
     Active Substance: ONDANSETRON HYDROCHLORIDE
     Indication: FOETAL EXPOSURE DURING PREGNANCY
     Route: 064
  2. ZOFRAN [Suspect]
     Active Substance: ONDANSETRON HYDROCHLORIDE
     Indication: FOETAL EXPOSURE DURING PREGNANCY
     Dosage: MOTHER^S DOSE: 4 MG, UNK
     Route: 064

REACTIONS (98)
  - Congenital mitral valve stenosis [Unknown]
  - Patent ductus arteriosus [Unknown]
  - Laevocardia [Unknown]
  - Mitral valve incompetence [Unknown]
  - Mitral valve atresia [Unknown]
  - Azotaemia [Unknown]
  - Rib deformity [Unknown]
  - Hypermetropia [Unknown]
  - Chest pain [Unknown]
  - Musculoskeletal pain [Unknown]
  - Refractive amblyopia [Unknown]
  - Cough [Unknown]
  - Irritability [Unknown]
  - Noninfective gingivitis [Unknown]
  - Left ventricle outflow tract obstruction [Unknown]
  - Pulmonary oedema [Recovering/Resolving]
  - Pleural effusion [Unknown]
  - Ventricular hypokinesia [Unknown]
  - Right ventricular dilatation [Unknown]
  - Pericardial effusion [Unknown]
  - Foetal exposure during pregnancy [Unknown]
  - Pharyngitis [Unknown]
  - Gastrooesophageal reflux disease [Unknown]
  - Transient tachypnoea of the newborn [Recovering/Resolving]
  - Vision blurred [Unknown]
  - Keratosis pilaris [Unknown]
  - Dental caries [Unknown]
  - Decreased appetite [Unknown]
  - Malocclusion [Unknown]
  - Shone complex [Unknown]
  - Cytogenetic abnormality [Unknown]
  - Aortic valve incompetence [Unknown]
  - Atelectasis neonatal [Unknown]
  - Right atrial enlargement [Unknown]
  - Thymus disorder [Unknown]
  - Bronchitis [Unknown]
  - Dyspnoea [Unknown]
  - Anisocytosis [Unknown]
  - Asthma [Unknown]
  - Anomalous pulmonary venous connection [Unknown]
  - Ventricular septal defect [Unknown]
  - Right-to-left cardiac shunt [Unknown]
  - Aortic valve atresia [Unknown]
  - Left ventricular hypertrophy [Unknown]
  - Right ventricular enlargement [Unknown]
  - Glaucoma [Unknown]
  - Gastric dilatation [Unknown]
  - Dysphagia [Unknown]
  - Oropharyngeal pain [Unknown]
  - Conjunctivitis [Unknown]
  - Astigmatism [Unknown]
  - Rhinitis allergic [Unknown]
  - Dermatitis diaper [Unknown]
  - Cystic lymphangioma [Unknown]
  - Mitral valve hypoplasia [Unknown]
  - Neonatal respiratory failure [Unknown]
  - Right ventricular hypertrophy [Unknown]
  - Nasal congestion [Unknown]
  - Pyrexia [Unknown]
  - Acute sinusitis [Unknown]
  - Strabismus [Unknown]
  - Insomnia [Unknown]
  - Otitis media [Unknown]
  - Dysuria [Unknown]
  - Pollakiuria [Unknown]
  - Micturition urgency [Unknown]
  - Bicuspid aortic valve [Unknown]
  - Umbilical cord cyst [Unknown]
  - Aorta hypoplasia [Unknown]
  - Tricuspid valve incompetence [Unknown]
  - Right atrial dilatation [Unknown]
  - Cardiac murmur [Unknown]
  - Arthralgia [Unknown]
  - Heart disease congenital [Unknown]
  - Coarctation of the aorta [Unknown]
  - Right aortic arch [Unknown]
  - Left atrial dilatation [Unknown]
  - Croup infectious [Unknown]
  - Bradycardia neonatal [Unknown]
  - Bundle branch block right [Unknown]
  - Staphylococcal infection [Unknown]
  - Upper respiratory tract infection [Unknown]
  - Lung hyperinflation [Unknown]
  - Rash [Unknown]
  - Eye infection [Unknown]
  - Intraocular pressure increased [Unknown]
  - Macrocytosis [Unknown]
  - Anaemia neonatal [Unknown]
  - Conjunctivitis allergic [Unknown]
  - Hypoplastic left heart syndrome [Unknown]
  - Congenital aortic valve stenosis [Unknown]
  - Pyelocaliectasis [Unknown]
  - Left-to-right cardiac shunt [Unknown]
  - Ventricular hypoplasia [Unknown]
  - Pulmonary valve incompetence [Unknown]
  - Ocular hypertension [Unknown]
  - Polychromasia [Unknown]
  - Wheezing [Unknown]

NARRATIVE: CASE EVENT DATE: 2007
